FAERS Safety Report 8835087 (Version 4)
Quarter: 2013Q1

REPORT INFORMATION
  Report Type: Spontaneous
  Country: JP (occurrence: JP)
  Receive Date: 20121010
  Receipt Date: 20130312
  Transmission Date: 20140127
  Serious: Yes (Hospitalization)
  Sender: FDA-Public Use
  Company Number: JP-ROCHE-1143011

PATIENT
  Age: 43 None
  Sex: Male

DRUGS (7)
  1. ACTEMRA [Suspect]
     Indication: RHEUMATOID VASCULITIS
     Dosage: DOSAGE IS UNCERTAIN.
     Route: 041
     Dates: start: 20110915, end: 20120131
  2. PREDNISOLONE [Concomitant]
     Indication: RHEUMATOID VASCULITIS
     Route: 048
     Dates: start: 20110818, end: 20111128
  3. PREDNISOLONE [Concomitant]
     Indication: RHEUMATOID VASCULITIS
     Route: 048
     Dates: start: 20111129, end: 20111218
  4. PREDNISOLONE [Concomitant]
     Indication: RHEUMATOID VASCULITIS
     Route: 048
     Dates: start: 20111219, end: 20120305
  5. PREDNISOLONE [Concomitant]
     Indication: RHEUMATOID VASCULITIS
     Route: 048
     Dates: start: 20120306, end: 20120416
  6. PREDNISOLONE [Concomitant]
     Indication: RHEUMATOID VASCULITIS
     Route: 048
     Dates: start: 20120417
  7. LOXONIN [Concomitant]
     Indication: RHEUMATOID VASCULITIS
     Route: 048
     Dates: start: 20110818

REACTIONS (3)
  - Gas gangrene [Recovered/Resolved]
  - Decubitus ulcer [Unknown]
  - Blood glucose increased [Unknown]
